FAERS Safety Report 8103317-2 (Version None)
Quarter: 2012Q1

REPORT INFORMATION
  Report Type: 
  Country: None (occurrence: None)
  Receive Date: 20120201
  Receipt Date: 20120126
  Transmission Date: 20120608
  Serious: Yes (Life-Threatening, Hospitalization)
  Sender: FDA-Public Use
  Company Number: US-CELGENEUS-163-C5013-09111755

PATIENT
  Sex: Male
  Weight: 84.126 kg

DRUGS (30)
  1. PREDNISONE TAB [Suspect]
     Indication: PROSTATE CANCER
     Dosage: 10 MILLIGRAM
     Route: 048
     Dates: start: 20091116, end: 20091120
  2. OS-CAL 500 PLUS D [Concomitant]
     Dosage: 1 TABLET
     Route: 048
     Dates: end: 20091120
  3. DEMEROL [Concomitant]
     Dosage: 75 MILLIGRAM
     Route: 041
     Dates: start: 20091119
  4. LENALIDOMIDE [Suspect]
     Indication: PROSTATE CANCER
     Dosage: 25 MILLIGRAM
     Route: 048
     Dates: start: 20091117, end: 20091120
  5. LEVOFLOXACIN [Concomitant]
     Indication: BACTERIAL INFECTION
     Dosage: 500 MILLIGRAM
     Route: 048
     Dates: start: 20091122, end: 20091122
  6. PALONOSETRON [Concomitant]
  7. ONDANSETRON [Concomitant]
     Indication: ANTIEMETIC SUPPORTIVE CARE
     Dosage: 8 MILLIGRAM
     Route: 048
     Dates: start: 20091123
  8. LEVOFLOXACIN [Concomitant]
     Indication: URINARY TRACT INFECTION
  9. ZOLEDRONIC ACID [Concomitant]
     Indication: METASTASES TO BONE
     Dosage: 4 MILLIGRAM
     Route: 041
     Dates: start: 20091116, end: 20091116
  10. LENALIDOMIDE [Suspect]
     Dosage: 25 MILLIGRAM
     Route: 048
     Dates: start: 20091207, end: 20091216
  11. NAPROXEN [Concomitant]
     Indication: PAIN
     Dosage: 220 MILLIGRAM
     Route: 048
     Dates: start: 20091001, end: 20091120
  12. DEXAMETHASONE [Concomitant]
     Dosage: 20 MILLIGRAM
     Route: 041
     Dates: start: 20091116, end: 20091116
  13. MORPHINE SULFATE [Concomitant]
     Indication: PAIN
     Dosage: 4 MILLIGRAM
     Route: 041
     Dates: start: 20091119, end: 20091119
  14. OS-CAL 500 PLUS D [Concomitant]
     Route: 048
     Dates: start: 20091123
  15. POLYETHYLENE GLYCOL [Concomitant]
     Indication: CONSTIPATION
     Dosage: 17 GRAM
     Route: 048
     Dates: start: 20091119, end: 20091120
  16. PALONOSETRON [Concomitant]
     Dosage: .25 MILLIGRAM
     Route: 041
     Dates: start: 20091116, end: 20091116
  17. DIPHENHYDRAMINE HCL [Concomitant]
     Indication: PROPHYLAXIS
     Dosage: 25 MILLIGRAM
     Route: 041
     Dates: start: 20091116, end: 20091116
  18. ROCEPHIN [Concomitant]
     Indication: URINARY TRACT INFECTION
     Dosage: 1 GRAM
     Route: 041
     Dates: start: 20091120, end: 20091121
  19. DOCETAXEL [Suspect]
     Indication: PROSTATE CANCER
     Dosage: 75 MILLIGRAM/SQ. METER
     Route: 041
     Dates: start: 20091116
  20. MESALAMINE [Concomitant]
     Route: 054
     Dates: end: 20091120
  21. POTASSIUM CHLORIDE [Concomitant]
     Dosage: 30 MILLIEQUIVALENTS
     Route: 048
     Dates: start: 20091119
  22. AMPICILLIN [Concomitant]
     Indication: INFECTION
     Dosage: 500 MILLIGRAM
     Route: 048
     Dates: start: 20091123, end: 20091130
  23. PREDNISONE TAB [Suspect]
     Dosage: 10 MILLIGRAM
     Route: 048
     Dates: start: 20091123
  24. DEXAMETHASONE [Concomitant]
     Indication: CHEMOTHERAPY
     Dosage: 8 MILLIGRAM
     Route: 048
     Dates: start: 20091115, end: 20091117
  25. AMBIEN [Concomitant]
     Indication: INSOMNIA
     Dosage: 10 MILLIGRAM
     Route: 048
     Dates: start: 20091120
  26. SODIUM CHLORIDE [Concomitant]
     Dosage: 500 MILLILITER
     Route: 040
     Dates: start: 20091119, end: 20091119
  27. ROWASA [Concomitant]
     Route: 065
  28. REGLAN [Concomitant]
     Indication: CONSTIPATION
     Dosage: 5 MILLIGRAM
     Route: 048
     Dates: start: 20091119, end: 20091119
  29. CELEXA [Concomitant]
     Indication: DEPRESSION
     Dosage: 10 MILLIGRAM
     Route: 048
  30. TAXOTERE [Concomitant]
     Dosage: 75 MILLIGRAM/SQ. METER
     Route: 065

REACTIONS (5)
  - HYPERBILIRUBINAEMIA [None]
  - NEUTROPENIA [None]
  - ABDOMINAL PAIN [None]
  - NEUTROPENIC INFECTION [None]
  - PYREXIA [None]
